FAERS Safety Report 25545426 (Version 1)
Quarter: 2025Q3

REPORT INFORMATION
  Report Type: Spontaneous
  Country: EU (occurrence: EU)
  Receive Date: 20250711
  Receipt Date: 20250711
  Transmission Date: 20251021
  Serious: Yes (Death, Other)
  Sender: B. BRAUN MEDICAL INC.
  Company Number: EU-B. Braun Medical Inc.-ES-BBM-202502624

PATIENT
  Age: 70 Year
  Sex: Female

DRUGS (2)
  1. CEFTAZIDIME [Suspect]
     Active Substance: CEFTAZIDIME
     Indication: Infection
  2. MEROPENEM [Suspect]
     Active Substance: MEROPENEM
     Indication: Infection

REACTIONS (1)
  - Drug reaction with eosinophilia and systemic symptoms [Fatal]
